FAERS Safety Report 4506685-3 (Version None)
Quarter: 2004Q4

REPORT INFORMATION
  Report Type: 
  Country: None (occurrence: None)
  Receive Date: 20041117
  Receipt Date: 20041105
  Transmission Date: 20050328
  Serious: Yes (Life-Threatening)
  Sender: FDA-Public Use
  Company Number: 2004-BP-09999BP

PATIENT
  Age: 39 Year
  Sex: Male
  Weight: 91.17 kg

DRUGS (1)
  1. SPIRIVA [Suspect]
     Indication: CHRONIC OBSTRUCTIVE AIRWAYS DISEASE
     Dosage: 18 MCG, IH
     Route: 055
     Dates: start: 20041016

REACTIONS (2)
  - CHEST DISCOMFORT [None]
  - FEAR [None]
